FAERS Safety Report 8845995 (Version 1)
Quarter: 2012Q4

REPORT INFORMATION
  Report Type: 
  Country: NL (occurrence: NL)
  Receive Date: 20121017
  Receipt Date: 20121017
  Transmission Date: 20130627
  Serious: Yes (Hospitalization)
  Sender: FDA-Public Use
  Company Number: NL-TEVA-364236ISR

PATIENT
  Sex: Female

DRUGS (1)
  1. PROPRANOLOL [Suspect]
     Dosage: 1 time per day, 1 piece (s)
     Route: 048
     Dates: start: 201208, end: 201208

REACTIONS (1)
  - Hepatic encephalopathy [Recovered/Resolved]
